FAERS Safety Report 21347910 (Version 1)
Quarter: 2022Q3

REPORT INFORMATION
  Report Type: Spontaneous
  Country: DE (occurrence: DE)
  Receive Date: 20220919
  Receipt Date: 20220919
  Transmission Date: 20221027
  Serious: Yes (Hospitalization)
  Sender: FDA-Public Use
  Company Number: DE-NOVARTISPH-NVSC2022DE205278

PATIENT
  Age: 76 Year
  Sex: Female
  Weight: 50 kg

DRUGS (4)
  1. METHOTREXATE [Suspect]
     Active Substance: METHOTREXATE
     Indication: Product used for unknown indication
     Dosage: 10 MG, MITTWOCHS 1, TABLETTEN
     Route: 048
  2. PREDNISOLONE [Suspect]
     Active Substance: PREDNISOLONE
     Indication: Product used for unknown indication
     Dosage: 5 MG (5 MG, 1-0-0-0, TABLETTEN)
     Route: 048
  3. DABIGATRAN [Concomitant]
     Active Substance: DABIGATRAN
     Indication: Product used for unknown indication
     Dosage: 150 MG (150 MG, 1-0-1-0, KAPSELN)
     Route: 048
  4. KALIUM IODIDE [Concomitant]
     Indication: Product used for unknown indication
     Dosage: 100 UG (100 ?G, 1-0-0-0, TABLETTEN)
     Route: 048

REACTIONS (6)
  - Therapeutic drug monitoring analysis not performed [Unknown]
  - Product monitoring error [Unknown]
  - Norovirus infection [Unknown]
  - Hypokalaemia [Unknown]
  - Vomiting [Unknown]
  - Diarrhoea [Unknown]

NARRATIVE: CASE EVENT DATE: 20200308
